FAERS Safety Report 19642951 (Version 3)
Quarter: 2022Q1

REPORT INFORMATION
  Report Type: Report from Study
  Country: US (occurrence: None)
  Receive Date: 20210730
  Receipt Date: 20220210
  Transmission Date: 20220423
  Serious: Yes (Hospitalization, Other)
  Sender: FDA-Public Use
  Company Number: US-EISAI MEDICAL RESEARCH-EC-2021-086108

PATIENT
  Age: 62 Year
  Sex: Female
  Weight: 56.54 kg

DRUGS (34)
  1. LENVATINIB [Suspect]
     Active Substance: LENVATINIB
     Indication: Renal cell carcinoma
     Route: 048
     Dates: start: 20180807, end: 20201228
  2. LENVATINIB [Suspect]
     Active Substance: LENVATINIB
     Route: 048
     Dates: start: 20210109, end: 20210525
  3. LENVATINIB [Suspect]
     Active Substance: LENVATINIB
     Route: 048
     Dates: start: 20210614, end: 20210709
  4. LENVATINIB [Suspect]
     Active Substance: LENVATINIB
     Dosage: OVERDOSE
     Route: 048
     Dates: start: 20210710, end: 20210712
  5. LENVATINIB [Suspect]
     Active Substance: LENVATINIB
     Dosage: OVERDOSE
     Route: 048
     Dates: start: 20210713, end: 20210718
  6. LENVATINIB [Suspect]
     Active Substance: LENVATINIB
     Route: 048
     Dates: start: 20210719
  7. EVEROLIMUS [Suspect]
     Active Substance: EVEROLIMUS
     Indication: Renal cell carcinoma
     Route: 048
     Dates: start: 20180807, end: 20201228
  8. EVEROLIMUS [Suspect]
     Active Substance: EVEROLIMUS
     Route: 048
     Dates: start: 20210109, end: 20210525
  9. AMLODIPINE [Concomitant]
     Active Substance: AMLODIPINE BESYLATE
     Indication: Hypertension
     Route: 048
     Dates: start: 20190701
  10. HYDROCHLOROTHIAZIDE [Concomitant]
     Active Substance: HYDROCHLOROTHIAZIDE
     Indication: Oedema peripheral
     Route: 048
     Dates: start: 20190701
  11. ZYRTEC [Concomitant]
     Active Substance: CETIRIZINE HYDROCHLORIDE
     Indication: Sinus congestion
     Route: 048
     Dates: start: 20200830
  12. PEPCID [Concomitant]
     Active Substance: FAMOTIDINE
  13. VITAMIN D3 [Concomitant]
     Active Substance: CHOLECALCIFEROL
     Indication: Vitamin D deficiency
     Dates: start: 20201207
  14. CLARITIN [Concomitant]
     Active Substance: LORATADINE
     Indication: Sinus congestion
     Route: 048
     Dates: start: 201805
  15. VENTOLIN HFA [Concomitant]
     Active Substance: ALBUTEROL SULFATE
     Indication: Dyspnoea
     Dosage: PRN
     Route: 045
     Dates: start: 201804
  16. VENTOLIN HFA [Concomitant]
     Active Substance: ALBUTEROL SULFATE
     Indication: Wheezing
  17. TUMS [Concomitant]
     Active Substance: CALCIUM CARBONATE
     Indication: Nutritional supplementation
     Route: 048
     Dates: start: 20180628
  18. PERCOCET [Concomitant]
     Active Substance: ACETAMINOPHEN\OXYCODONE HYDROCHLORIDE
     Indication: Arthralgia
     Dosage: 5/325 MG
     Route: 048
     Dates: start: 20180706
  19. PERCOCET [Concomitant]
     Active Substance: ACETAMINOPHEN\OXYCODONE HYDROCHLORIDE
     Indication: Abdominal pain
  20. PHENERGAN [Concomitant]
     Active Substance: PROMETHAZINE HYDROCHLORIDE
     Indication: Nausea
     Route: 048
     Dates: start: 20180706
  21. ZOFRAN [Concomitant]
     Active Substance: ONDANSETRON HYDROCHLORIDE
     Indication: Nausea
     Route: 048
     Dates: start: 20180706
  22. ZINC [Concomitant]
     Active Substance: ZINC
     Indication: Nutritional supplementation
     Route: 048
     Dates: start: 20180731
  23. VITAMIN C [Concomitant]
     Active Substance: ASCORBIC ACID
     Indication: Nutritional supplementation
     Route: 048
     Dates: start: 20180731
  24. PREDNISONE [Concomitant]
     Active Substance: PREDNISONE
     Indication: Hypersensitivity
     Dosage: 12 HOUR AND 6 HOUR PRE-CT SCAN
     Dates: start: 20180815
  25. CANNABIDIOL\HERBALS [Concomitant]
     Active Substance: CANNABIDIOL\HERBALS
     Indication: Nutritional supplementation
     Dosage: PRN
     Route: 048
     Dates: start: 20190401
  26. FLONASE [Concomitant]
     Active Substance: FLUTICASONE PROPIONATE
     Indication: Sinus congestion
     Dosage: PRN
     Route: 045
     Dates: start: 20200201
  27. FLONASE [Concomitant]
     Active Substance: FLUTICASONE PROPIONATE
     Indication: Rhinitis allergic
  28. FLONASE [Concomitant]
     Active Substance: FLUTICASONE PROPIONATE
     Indication: Paranasal sinus discomfort
  29. TYLENOL [Concomitant]
     Active Substance: ACETAMINOPHEN
     Indication: Sinus headache
     Dosage: PRN
     Route: 048
     Dates: start: 20200712
  30. TYLENOL [Concomitant]
     Active Substance: ACETAMINOPHEN
     Indication: Back pain
  31. LIDOCAINE PATCH [Concomitant]
     Active Substance: LIDOCAINE
     Indication: Back pain
     Dates: start: 20200713
  32. BENADRYL [Concomitant]
     Active Substance: DIPHENHYDRAMINE HYDROCHLORIDE
     Indication: Sinus congestion
     Route: 048
     Dates: start: 20201201
  33. CALCIUM [Concomitant]
     Active Substance: CALCIUM
     Indication: Supplementation therapy
     Dosage: EVERY AM
     Dates: start: 20201201
  34. GABAPENTIN [Concomitant]
     Active Substance: GABAPENTIN
     Indication: Neuralgia
     Route: 048
     Dates: start: 20210105

REACTIONS (3)
  - Accidental overdose [Recovered/Resolved]
  - Volvulus of small bowel [Recovered/Resolved]
  - Herpes zoster [Recovered/Resolved]

NARRATIVE: CASE EVENT DATE: 20201231
